FAERS Safety Report 5650392-0 (Version None)
Quarter: 2008Q1

REPORT INFORMATION
  Report Type: 
  Country: None (occurrence: None)
  Receive Date: 20080304
  Receipt Date: 20080304
  Transmission Date: 20080703
  Serious: Yes (Life-Threatening, Hospitalization)
  Sender: FDA-Public Use
  Company Number: None

PATIENT
  Age: 70 Year
  Sex: Female
  Weight: 45.5 kg

DRUGS (5)
  1. HALOPERIDOL [Suspect]
     Indication: HUNTINGTON'S CHOREA
     Dosage: 1MG  THREE TIMES DAILY  PO
     Route: 048
     Dates: start: 20041005, end: 20070405
  2. FLUOXETINE [Concomitant]
  3. AMANTADINE HCL [Concomitant]
  4. CLONIDINE [Concomitant]
  5. ASPIRIN [Concomitant]

REACTIONS (6)
  - ACTIVITIES OF DAILY LIVING IMPAIRED [None]
  - CHOREA [None]
  - LETHARGY [None]
  - NEUROLEPTIC MALIGNANT SYNDROME [None]
  - PSYCHOTIC DISORDER [None]
  - PYREXIA [None]
